FAERS Safety Report 17191886 (Version 1)
Quarter: 2019Q4

REPORT INFORMATION
  Report Type: Report from Study
  Country: DE (occurrence: DE)
  Receive Date: 20191223
  Receipt Date: 20191223
  Transmission Date: 20200122
  Serious: Yes (Hospitalization, Disabling)
  Sender: FDA-Public Use
  Company Number: DE-TEVA-2019-DE-1120878

PATIENT
  Age: 55 Year
  Sex: Female

DRUGS (1)
  1. COPAXONE [Suspect]
     Active Substance: GLATIRAMER ACETATE
     Indication: RELAPSING MULTIPLE SCLEROSIS
     Route: 058
     Dates: start: 20180424

REACTIONS (3)
  - Musculoskeletal stiffness [Unknown]
  - Road traffic accident [Recovered/Resolved]
  - Comminuted fracture [Recovering/Resolving]

NARRATIVE: CASE EVENT DATE: 20181231
